FAERS Safety Report 8887478 (Version 1)
Quarter: 2012Q4

REPORT INFORMATION
  Report Type: Spontaneous
  Country: US (occurrence: None)
  Receive Date: 20121101
  Receipt Date: 20121101
  Transmission Date: 20130627
  Serious: No
  Sender: FDA-Public Use
  Company Number: None

PATIENT
  Age: 56 Year
  Sex: Male
  Weight: 76.36 kg

DRUGS (6)
  1. PIPERACILLIN + TAZOBACTAM [Suspect]
     Indication: INTRASPINAL ABSCESS
     Dosage: 18 gms 9 24 hrs cont IV PICC
     Dates: start: 20120727, end: 20120913
  2. PIPERACILLIN + TAZOBACTAM [Suspect]
     Indication: INTRASPINAL ABSCESS
     Dosage: 250ml ns 9 24 hrs cont IV PICC
     Dates: start: 20120727, end: 20120828
  3. PIPERACILLIN + TAZOBACTAM [Suspect]
     Indication: INTRASPINAL ABSCESS
     Dates: start: 20120825, end: 20120913
  4. HEPARIN [Concomitant]
  5. SALINE [Concomitant]
  6. VANCOMYCIN [Concomitant]

REACTIONS (1)
  - Liquid product physical issue [None]
